FAERS Safety Report 24332834 (Version 1)
Quarter: 2024Q3

REPORT INFORMATION
  Report Type: Spontaneous
  Country: IL (occurrence: IL)
  Receive Date: 20240918
  Receipt Date: 20240918
  Transmission Date: 20241016
  Serious: No
  Sender: PFIZER
  Company Number: IL-PFIZER INC-PV202400120704

PATIENT
  Age: 11 Year
  Sex: Female

DRUGS (1)
  1. NGENLA [Suspect]
     Active Substance: SOMATROGON-GHLA
     Dosage: UNK, WEEKLY
     Dates: start: 20240828

REACTIONS (3)
  - Injection site pain [Recovering/Resolving]
  - Injection site hypersensitivity [Recovering/Resolving]
  - Patient-device incompatibility [Recovering/Resolving]
